FAERS Safety Report 21043552 (Version 1)
Quarter: 2022Q3

REPORT INFORMATION
  Report Type: Spontaneous
  Country: US (occurrence: None)
  Receive Date: 20220704
  Receipt Date: 20220704
  Transmission Date: 20221027
  Serious: No
  Sender: FDA-Public Use
  Company Number: None

PATIENT
  Sex: Male

DRUGS (2)
  1. NOVOSEVEN RT [Suspect]
     Active Substance: COAGULATION FACTOR VIIA RECOMBINANT HUMAN
     Indication: Factor IX deficiency
     Dosage: FREQUENCY : EVERY 3 HOURS;?OTHER ROUTE : INFUSION;?
     Route: 050
     Dates: start: 20131120
  2. NOVOSEVEN RT [Suspect]
     Active Substance: COAGULATION FACTOR VIIA RECOMBINANT HUMAN
     Indication: Factor IX deficiency
     Dosage: OTHER FREQUENCY : EVERY 3 HOURS PRN;?OTHER ROUTE : INFUSION;?
     Route: 050
     Dates: start: 20131120

REACTIONS (1)
  - Weight increased [None]
